FAERS Safety Report 24292821 (Version 1)
Quarter: 2024Q3

REPORT INFORMATION
  Report Type: Spontaneous
  Country: US (occurrence: None)
  Receive Date: 20240906
  Receipt Date: 20240906
  Transmission Date: 20241016
  Serious: No
  Sender: DOMPE FARMACEUTICI
  Company Number: US-FARMAPROD-202308-202310-3110

PATIENT
  Sex: Female

DRUGS (25)
  1. OXERVATE [Suspect]
     Active Substance: CENEGERMIN-BKBJ
     Indication: Hypoaesthesia eye
     Route: 047
     Dates: start: 20230926
  2. OXERVATE [Suspect]
     Active Substance: CENEGERMIN-BKBJ
     Indication: Neurotrophic keratopathy
  3. LOSARTAN POTASSIUM [Concomitant]
     Active Substance: LOSARTAN POTASSIUM
  4. SINGULAIR [Concomitant]
     Active Substance: MONTELUKAST SODIUM
  5. LEVOTHYROXINE SODIUM [Concomitant]
     Active Substance: LEVOTHYROXINE SODIUM
  6. AMLODIPINE BESYLATE [Concomitant]
     Active Substance: AMLODIPINE BESYLATE
  7. LIPITOR [Concomitant]
     Active Substance: ATORVASTATIN CALCIUM
  8. FENOFIBRATE [Concomitant]
     Active Substance: FENOFIBRATE
  9. SYMBICORT [Concomitant]
     Active Substance: BUDESONIDE\FORMOTEROL FUMARATE DIHYDRATE
     Dosage: 160-4.5MCG HYDROFLUOROALKANE, AEROSOL WITH ADAPTER.
  10. VITAMIN D3 [Concomitant]
     Active Substance: CHOLECALCIFEROL
  11. METHOTREXATE [Concomitant]
     Active Substance: METHOTREXATE
  12. TYRVAYA [Concomitant]
     Active Substance: VARENICLINE TARTRATE
     Dosage: 0.03/SPRAY.
  13. PREDNISONE [Concomitant]
     Active Substance: PREDNISONE
  14. HYDROXYCHLOROQUINE SULFATE [Concomitant]
     Active Substance: HYDROXYCHLOROQUINE SULFATE
  15. COSOPT [Concomitant]
     Active Substance: DORZOLAMIDE HYDROCHLORIDE\TIMOLOL MALEATE
     Dosage: 22.3-6.8/1
  16. ROCKLATAN [Concomitant]
     Active Substance: LATANOPROST\NETARSUDIL MESYLATE
     Dosage: 0.02-0.005
  17. BRIMONIDINE TARTRATE [Concomitant]
     Active Substance: BRIMONIDINE TARTRATE
  18. UNSPECIFIED INGREDIENT [Concomitant]
     Active Substance: UNSPECIFIED INGREDIENT
     Dosage: 0.05 %-1 %
  19. FISH OIL [Concomitant]
     Active Substance: FISH OIL
  20. HYDROCHLOROTHIAZIDE\TRIAMTERENE [Concomitant]
     Active Substance: HYDROCHLOROTHIAZIDE\TRIAMTERENE
  21. PROAIR HFA [Concomitant]
     Active Substance: ALBUTEROL SULFATE
  22. FAMOTIDINE [Concomitant]
     Active Substance: FAMOTIDINE
  23. ASPIRIN [Concomitant]
     Active Substance: ASPIRIN
  24. METFORMIN HYDROCHLORIDE [Concomitant]
     Active Substance: METFORMIN HYDROCHLORIDE
     Dosage: 24 HOURS.
  25. PREMARIN [Concomitant]
     Active Substance: ESTROGENS, CONJUGATED
     Dosage: CREAM/APPLICATOR

REACTIONS (1)
  - Inappropriate schedule of product administration [Unknown]
